FAERS Safety Report 6932372-8 (Version None)
Quarter: 2010Q3

REPORT INFORMATION
  Report Type: 
  Country: None (occurrence: None)
  Receive Date: 20100813
  Receipt Date: 20100521
  Transmission Date: 20110219
  Serious: Yes (Other)
  Sender: FDA-Public Use
  Company Number: 1000013989

PATIENT
  Age: 41 Year
  Sex: Female

DRUGS (11)
  1. SAVELLA [Suspect]
     Indication: FIBROMYALGIA
     Dosage: 12.5 MG (12.5 MG, 1 IN 1 D), ORAL
     Route: 048
     Dates: start: 20100401, end: 20100401
  2. SAVELLA [Suspect]
     Indication: FIBROMYALGIA
     Dosage: 100 MG (50 MG, 2 IN 1 D), ORAL
     Route: 048
     Dates: start: 20100401
  3. CYMBALTA [Suspect]
  4. LEVOTHYROXINE SODIUM [Concomitant]
  5. AMITIZA [Concomitant]
  6. FLEXERIL [Concomitant]
  7. LODRANE [Concomitant]
  8. NEXIUM [Concomitant]
  9. OCELLA [Concomitant]
  10. ULTRAM [Concomitant]
  11. XANAX [Concomitant]

REACTIONS (6)
  - ANGER [None]
  - HYPERHIDROSIS [None]
  - SEROTONIN SYNDROME [None]
  - TREMOR [None]
  - VAGINAL HAEMORRHAGE [None]
  - VERTIGO [None]
